FAERS Safety Report 5732829-1 (Version None)
Quarter: 2008Q2

REPORT INFORMATION
  Report Type: 
  Country: None (occurrence: None)
  Receive Date: 20080507
  Receipt Date: 20080507
  Transmission Date: 20081010
  Serious: Yes (Death)
  Sender: FDA-Public Use
  Company Number: None

PATIENT
  Age: 18 Year
  Sex: Female

DRUGS (1)
  1. ISOFLURANE [Suspect]

REACTIONS (12)
  - BLOOD GASES ABNORMAL [None]
  - BLOOD POTASSIUM INCREASED [None]
  - BODY TEMPERATURE INCREASED [None]
  - CARBON DIOXIDE INCREASED [None]
  - CARDIAC ARREST [None]
  - CHEST DISCOMFORT [None]
  - DISSEMINATED INTRAVASCULAR COAGULATION [None]
  - HEART RATE INCREASED [None]
  - INFUSION SITE HAEMORRHAGE [None]
  - MALIGNANT HYPERTENSION [None]
  - MUSCLE TIGHTNESS [None]
  - PROCEDURAL COMPLICATION [None]
